FAERS Safety Report 6305491-7 (Version None)
Quarter: 2009Q3

REPORT INFORMATION
  Report Type: 
  Country: None (occurrence: None)
  Receive Date: 20090811
  Receipt Date: 20090731
  Transmission Date: 20100115
  Serious: Yes (Other)
  Sender: FDA-Public Use
  Company Number: DE-TYCO HEALTHCARE/MALLINCKRODT-T200901451

PATIENT

DRUGS (13)
  1. TRAMADOL [Suspect]
     Indication: POSTOPERATIVE ANALGESIA
     Dosage: 200 MG, SINGLE
     Route: 042
  2. TRAMADOL [Suspect]
     Dosage: 50 MG, BOLUS
     Route: 042
  3. TRAMADOL [Suspect]
     Dosage: 50 MG, BOLUS
     Route: 042
  4. TRAMADOL [Suspect]
     Dosage: 20 MG, 11 DELIVERED PCA DOSES; 4 IN 1ST HOUR
     Route: 042
  5. TRAMADOL [Suspect]
     Dosage: 10 MG, NONE ADMINISTERED (NO DEMANDS FROM PCA WERE MADE)
     Route: 042
  6. TRAMADOL [Suspect]
     Dosage: 200 MG-4 DELIVERED PCA
     Route: 042
  7. NIFEDIPINE [Concomitant]
  8. FENTANYL [Concomitant]
     Indication: ANALGESIA
     Dosage: 150 UG, UNK
  9. PROPOFOL [Concomitant]
     Indication: ANALGESIA
     Dosage: 2 MG/KG, UNK
  10. CISATRACURIUM [Concomitant]
     Indication: ANALGESIA
     Dosage: 10 MG, UNK
  11. CRYSTALLOID AND COLLOID FLUIDS [Concomitant]
     Dosage: 1500 AND 1000 ML
  12. DIPYRONE [Concomitant]
     Indication: PROCEDURAL PAIN
     Dosage: 200 MG, 11 DELIVERED PCA DOSES; 4 IN 1ST HOUR
     Route: 042
  13. DIPYRONE [Concomitant]
     Dosage: 200 MG-4 DELIVERED PCA
     Route: 042

REACTIONS (2)
  - RESPIRATORY DEPRESSION [None]
  - UNRESPONSIVE TO STIMULI [None]
